FAERS Safety Report 4637277-3 (Version None)
Quarter: 2005Q2

REPORT INFORMATION
  Report Type: 
  Country: None (occurrence: None)
  Receive Date: 20050418
  Receipt Date: 20050406
  Transmission Date: 20051028
  Serious: Yes (Other)
  Sender: FDA-Public Use
  Company Number: US-JNJFOC-20050202366

PATIENT
  Sex: Male
  Weight: 81.19 kg

DRUGS (2)
  1. REMICADE [Suspect]
     Indication: RHEUMATOID ARTHRITIS
     Dosage: HAS BEEN ON INFLXIMAB ^FOR TWO YEARS^
     Route: 042
  2. METHOTREXATE [Concomitant]

REACTIONS (1)
  - PROSTATE CANCER [None]
